FAERS Safety Report 5494798-1 (Version None)
Quarter: 2007Q4

REPORT INFORMATION
  Report Type: 
  Country: None (occurrence: None)
  Receive Date: 20071024
  Receipt Date: 20071022
  Transmission Date: 20080405
  Serious: Yes (Other)
  Sender: FDA-Public Use
  Company Number: A0668303A

PATIENT
  Age: 55 Year
  Sex: Male

DRUGS (3)
  1. COMMIT [Suspect]
     Indication: SMOKING CESSATION THERAPY
     Route: 002
  2. COMMIT [Suspect]
     Indication: SMOKING CESSATION THERAPY
     Dates: start: 20070701
  3. ARTHRITIS MEDICATION [Concomitant]

REACTIONS (5)
  - EYE DISORDER [None]
  - EYE INFLAMMATION [None]
  - GLAUCOMA [None]
  - INTENTIONAL DRUG MISUSE [None]
  - OPTIC NEURITIS [None]
